FAERS Safety Report 19427478 (Version 3)
Quarter: 2021Q3

REPORT INFORMATION
  Report Type: Spontaneous
  Country: JP (occurrence: JP)
  Receive Date: 20210617
  Receipt Date: 20210908
  Transmission Date: 20211014
  Serious: Yes (Other)
  Sender: FDA-Public Use
  Company Number: JP-009507513-2106JPN000625J

PATIENT
  Age: 76 Year
  Sex: Male

DRUGS (1)
  1. KEYTRUDA [Suspect]
     Active Substance: PEMBROLIZUMAB
     Indication: MALIGNANT NEOPLASM PROGRESSION
     Dosage: UNK
     Route: 041

REACTIONS (1)
  - Tumour pseudoprogression [Recovering/Resolving]
